FAERS Safety Report 23640706 (Version 1)
Quarter: 2024Q1

REPORT INFORMATION
  Report Type: Spontaneous
  Country: IN (occurrence: IN)
  Receive Date: 20240318
  Receipt Date: 20240318
  Transmission Date: 20240410
  Serious: Yes (Other)
  Sender: FDA-Public Use
  Company Number: IN-VKT-000455

PATIENT
  Age: 14 Year
  Sex: Male

DRUGS (2)
  1. RANITIDINE [Suspect]
     Active Substance: RANITIDINE
     Indication: Preoperative care
     Route: 042
  2. ONDANSETRON [Suspect]
     Active Substance: ONDANSETRON
     Indication: Preoperative care
     Route: 042

REACTIONS (4)
  - Urticaria [Unknown]
  - Type I hypersensitivity [Unknown]
  - Pyrexia [Unknown]
  - Rash [Unknown]
